FAERS Safety Report 20985199 (Version 1)
Quarter: 2022Q2

REPORT INFORMATION
  Report Type: Spontaneous
  Country: US (occurrence: None)
  Receive Date: 20220621
  Receipt Date: 20220621
  Transmission Date: 20220721
  Serious: No
  Sender: FDA-Public Use
  Company Number: US-ROCHE-2977855

PATIENT
  Sex: Female

DRUGS (21)
  1. XELODA [Suspect]
     Active Substance: CAPECITABINE
     Indication: Pulmonary embolism
     Route: 048
  2. BIOTIN [Concomitant]
     Active Substance: BIOTIN
  3. CHOLECALCIFEROL [Concomitant]
     Active Substance: CHOLECALCIFEROL
  4. COLACE [Concomitant]
     Active Substance: DOCUSATE SODIUM
  5. MIRALAX [Concomitant]
     Active Substance: POLYETHYLENE GLYCOL 3350
  6. OLMESARTAN [Concomitant]
     Active Substance: OLMESARTAN
  7. BIOTIN\CALCIUM PANTOTHENATE\CHOLINE BITARTRATE\CYANOCOBALAMIN\FOLIC AC [Concomitant]
     Active Substance: BIOTIN\CALCIUM PANTOTHENATE\CHOLINE BITARTRATE\CYANOCOBALAMIN\FOLIC ACID\INOSITOL\NIACINAMIDE\PYRIDO
  8. XARELTO [Concomitant]
     Active Substance: RIVAROXABAN
  9. ZITHROMAX [Concomitant]
     Active Substance: AZITHROMYCIN DIHYDRATE
  10. GABAPENTIN [Concomitant]
     Active Substance: GABAPENTIN
  11. ADVIL [Concomitant]
     Active Substance: IBUPROFEN
  12. TYLENOL [Concomitant]
     Active Substance: ACETAMINOPHEN
  13. ALOE VERA LEAF [Concomitant]
     Active Substance: ALOE VERA LEAF
  14. CALCIUM CITRATE [Concomitant]
     Active Substance: CALCIUM CITRATE
     Dosage: 315-250 M
  15. VITAMIN D3 [Concomitant]
     Active Substance: CHOLECALCIFEROL
     Dosage: 1000 UNIT
  16. ELIQUIS [Concomitant]
     Active Substance: APIXABAN
  17. LOSARTAN POTASSIUM [Concomitant]
     Active Substance: LOSARTAN POTASSIUM
  18. OMEPRAZOLE [Concomitant]
     Active Substance: OMEPRAZOLE
  19. METHYLPREDNISOLONE [Concomitant]
     Active Substance: METHYLPREDNISOLONE
  20. FLONASE [Concomitant]
     Active Substance: FLUTICASONE PROPIONATE
     Dosage: SUS 50 MCG/AC
  21. CRANBERRY [Concomitant]
     Active Substance: CRANBERRY

REACTIONS (2)
  - Drug ineffective [Unknown]
  - No adverse event [Unknown]
